FAERS Safety Report 12790985 (Version 5)
Quarter: 2021Q4

REPORT INFORMATION
  Report Type: Spontaneous
  Country: US (occurrence: US)
  Receive Date: 20160929
  Receipt Date: 20211201
  Transmission Date: 20220303
  Serious: No
  Sender: FDA-Public Use
  Company Number: US-PFIZER INC-2016449242

PATIENT
  Age: 60 Year
  Sex: Male
  Weight: 81 kg

DRUGS (6)
  1. LYRICA [Suspect]
     Active Substance: PREGABALIN
     Indication: Complex regional pain syndrome
     Dosage: 200 MG, 3X/DAY
     Route: 048
     Dates: start: 20160617
  2. XANAX [Concomitant]
     Active Substance: ALPRAZOLAM
     Dosage: UNK
     Route: 048
  3. HYDROCHLOROTHIAZIDE\TRIAMTERENE [Concomitant]
     Active Substance: HYDROCHLOROTHIAZIDE\TRIAMTERENE
     Dosage: UNK
     Route: 048
  4. ASPIRIN [Concomitant]
     Active Substance: ASPIRIN
     Dosage: UNK
     Route: 048
  5. METHADONE HYDROCHLORIDE [Concomitant]
     Active Substance: METHADONE HYDROCHLORIDE
     Dosage: 5 MG, (1-2 TABLET TWO TIMES DAILY)
     Dates: start: 20160802
  6. NORCO [Concomitant]
     Active Substance: ACETAMINOPHEN\HYDROCODONE BITARTRATE
     Dosage: 5-325MG, 1-2 TABLET TWO TIMES DAILY, AS NEEDED
     Dates: start: 20160802

REACTIONS (4)
  - Constipation [Unknown]
  - Illness [Unknown]
  - Off label use [Unknown]
  - Mobility decreased [Unknown]

NARRATIVE: CASE EVENT DATE: 20160617
